FAERS Safety Report 7763522-1 (Version None)
Quarter: 2011Q3

REPORT INFORMATION
  Report Type: 
  Country: None (occurrence: None)
  Receive Date: 20110920
  Receipt Date: 20110915
  Transmission Date: 20111222
  Serious: Yes (Life-Threatening, Hospitalization, Disabling)
  Sender: FDA-Public Use
  Company Number: US-GILEAD-2011-0043916

PATIENT
  Sex: Female

DRUGS (2)
  1. TRACLEER [Concomitant]
  2. LETAIRIS [Suspect]
     Indication: PRODUCT USED FOR UNKNOWN INDICATION
     Route: 048
     Dates: start: 20110712, end: 20110912

REACTIONS (2)
  - DYSPNOEA [None]
  - ATRIAL SEPTAL DEFECT [None]
